FAERS Safety Report 8850538 (Version 1)
Quarter: 2012Q4

REPORT INFORMATION
  Report Type: 
  Country: US (occurrence: US)
  Receive Date: 20121019
  Receipt Date: 20121019
  Transmission Date: 20130627
  Serious: Yes (Other)
  Sender: FDA-Public Use
  Company Number: CHPA2012US022076

PATIENT
  Age: 58 Year
  Sex: Female

DRUGS (8)
  1. 4 WAY FAST ACTING NASAL SPRAY [Suspect]
     Indication: SNEEZING
     Dosage: 1 DF, PRN
     Route: 045
  2. ASPIRIN ^BAYER^ [Concomitant]
     Dosage: Unk, Unk
  3. PAPAYA ENZYME [Concomitant]
     Dosage: 5-6 DF, AFTER MEALS, PRN
     Dates: start: 1977
  4. DRUG THERAPY NOS [Concomitant]
     Dosage: UNK
     Dates: start: 201112
  5. ANTIBIOTICS [Concomitant]
     Dosage: Unk,  Unk
  6. MUCINEX [Concomitant]
     Dosage: Unk, Unk
  7. AFRIN                              /00070002/ [Concomitant]
     Dosage: Unk, Unk
  8. FLONASE [Concomitant]
     Dosage: Unk, BID
     Dates: start: 2011

REACTIONS (5)
  - Drug dependence [Not Recovered/Not Resolved]
  - Sinus headache [Not Recovered/Not Resolved]
  - Therapeutic response unexpected [Not Recovered/Not Resolved]
  - Off label use [Unknown]
  - Underdose [Unknown]
